FAERS Safety Report 9985889 (Version 2)
Quarter: 2014Q1

REPORT INFORMATION
  Report Type: Spontaneous
  Country: US (occurrence: US)
  Receive Date: 20140307
  Receipt Date: 20140307
  Transmission Date: 20141002
  Serious: No
  Sender: FDA-Public Use
  Company Number: US-ASTRAZENECA-2001UW06124

PATIENT
  Age: 90 Year
  Sex: Female
  Weight: 68 kg

DRUGS (6)
  1. NEXIUM [Suspect]
     Indication: GASTROOESOPHAGEAL REFLUX DISEASE
     Route: 048
     Dates: start: 200105
  2. HYZAAR [Concomitant]
  3. FOSAMAX [Concomitant]
  4. CALCIUM [Concomitant]
  5. VITAMIN D [Concomitant]
  6. VITAMIN E [Concomitant]

REACTIONS (4)
  - Adverse event [Unknown]
  - Flatulence [Unknown]
  - Diarrhoea [Unknown]
  - Circumstance or information capable of leading to medication error [Unknown]
